FAERS Safety Report 8219170-2 (Version None)
Quarter: 2012Q1

REPORT INFORMATION
  Report Type: 
  Country: None (occurrence: None)
  Receive Date: 20120319
  Receipt Date: 20120306
  Transmission Date: 20120608
  Serious: Yes (Death, Other)
  Sender: FDA-Public Use
  Company Number: SK-CELGENEUS-260-21880-12030705

PATIENT
  Age: 90 Year
  Sex: Female

DRUGS (4)
  1. EPOGEN [Concomitant]
     Route: 065
  2. ANOPYRIN [Concomitant]
     Indication: THROMBOSIS PROPHYLAXIS
     Route: 065
  3. REVLIMID [Suspect]
     Dosage: 10 MILLIGRAM
     Route: 048
  4. ANTIHYPERTENSIVES [Concomitant]
     Route: 065

REACTIONS (3)
  - SEPSIS [None]
  - GANGRENE [None]
  - PERIPHERAL ISCHAEMIA [None]
